FAERS Safety Report 14293059 (Version 8)
Quarter: 2018Q4

REPORT INFORMATION
  Report Type: Spontaneous
  Country: NO (occurrence: NO)
  Receive Date: 20171215
  Receipt Date: 20181226
  Transmission Date: 20190204
  Serious: Yes (Hospitalization, Disabling)
  Sender: FDA-Public Use
  Company Number: NO-PFIZER INC-2017529588

PATIENT
  Age: 63 Year
  Sex: Male

DRUGS (15)
  1. ESCITALOPRAM [Concomitant]
     Active Substance: ESCITALOPRAM OXALATE
     Dosage: UNK
  2. NEURONTIN [Suspect]
     Active Substance: GABAPENTIN
     Indication: NEURALGIA
     Dosage: 900 MG, DAILY
     Dates: start: 20141105, end: 20170324
  3. SPIRONOLACTONE ORION [Concomitant]
     Active Substance: SPIRONOLACTONE
     Dosage: UNK
  4. CLOPIDOGREL [Concomitant]
     Active Substance: CLOPIDOGREL BISULFATE
     Dosage: UNK
  5. ACETYLSALICYLIC ACID ACTAVIS ENTEROTABLETS [Concomitant]
     Dosage: UNK
  6. ZOPIKLON [Concomitant]
     Active Substance: ZOPICLONE
     Dosage: UNK
  7. BISOPROLOL SANDOZ [Concomitant]
     Active Substance: BISOPROLOL
     Dosage: UNK
  8. MALFIN [Concomitant]
     Active Substance: MORPHINE SULFATE
     Dosage: UNK
  9. MIANSERIN MYLAN [Concomitant]
     Active Substance: MIANSERIN
     Dosage: UNK
  10. FLAGYL [Suspect]
     Active Substance: METRONIDAZOLE\METRONIDAZOLE HYDROCHLORIDE
     Dosage: UNK
  11. AMARYL [Concomitant]
     Active Substance: GLIMEPIRIDE
     Dosage: UNK
  12. FUROSEMIDE. [Concomitant]
     Active Substance: FUROSEMIDE
     Dosage: UNK
  13. RAMIPRIL ACTAVIS [Concomitant]
     Active Substance: RAMIPRIL
     Dosage: UNK
  14. VESICARE [Concomitant]
     Active Substance: SOLIFENACIN SUCCINATE
     Dosage: UNK
  15. HIPREX [Concomitant]
     Active Substance: METHENAMINE HIPPURATE
     Dosage: UNK

REACTIONS (13)
  - Myoclonus [Unknown]
  - Finger deformity [Unknown]
  - Headache [Unknown]
  - Neck pain [Unknown]
  - Mobility decreased [Unknown]
  - Fatigue [Unknown]
  - Somnolence [Unknown]
  - Muscle atrophy [Unknown]
  - Hypokinesia [Unknown]
  - Tremor [Unknown]
  - Nerve injury [Unknown]
  - Amnesia [Unknown]
  - Drug ineffective [Unknown]

NARRATIVE: CASE EVENT DATE: 2014
